FAERS Safety Report 9272566 (Version 1)
Quarter: 2013Q2

REPORT INFORMATION
  Report Type: Spontaneous
  Country: NL (occurrence: NL)
  Receive Date: 20130506
  Receipt Date: 20130506
  Transmission Date: 20140414
  Serious: Yes (Hospitalization)
  Sender: FDA-Public Use
  Company Number: NL-GLAXOSMITHKLINE-B0883455A

PATIENT
  Age: 59 Year
  Sex: Male

DRUGS (1)
  1. MELPHALAN [Suspect]
     Indication: PLASMA CELL MYELOMA
     Dosage: 100MGM2 PER DAY
     Route: 042
     Dates: start: 20130119

REACTIONS (1)
  - Toxic encephalopathy [Not Recovered/Not Resolved]
